FAERS Safety Report 8008903-6 (Version None)
Quarter: 2011Q4

REPORT INFORMATION
  Report Type: 
  Country: None (occurrence: None)
  Receive Date: 20111227
  Receipt Date: 20111220
  Transmission Date: 20120403
  Serious: Yes (Hospitalization)
  Sender: FDA-Public Use
  Company Number: US-ROCHE-1024879

PATIENT
  Sex: Male
  Weight: 62.3 kg

DRUGS (6)
  1. COUMADIN [Concomitant]
  2. XELODA [Suspect]
     Indication: COLON CANCER
     Route: 048
     Dates: start: 20110610
  3. TRAZALON [Concomitant]
  4. METOPROLOL SUCCINATE [Concomitant]
  5. CYMBALTA [Concomitant]
  6. XELODA [Suspect]
     Route: 048
     Dates: end: 20110705

REACTIONS (3)
  - INTESTINAL PERFORATION [None]
  - PALMAR-PLANTAR ERYTHRODYSAESTHESIA SYNDROME [None]
  - STOMATITIS [None]
